FAERS Safety Report 11253802 (Version 1)
Quarter: 2015Q3

REPORT INFORMATION
  Report Type: Spontaneous
  Country: US (occurrence: None)
  Receive Date: 20150707
  Receipt Date: 20150707
  Transmission Date: 20151125
  Serious: No
  Sender: FDA-Public Use
  Company Number: None

PATIENT
  Age: 64 Year
  Sex: Male
  Weight: 90.72 kg

DRUGS (13)
  1. HYZAAR [Concomitant]
     Active Substance: HYDROCHLOROTHIAZIDE\LOSARTAN POTASSIUM
  2. NIACIN. [Concomitant]
     Active Substance: NIACIN
  3. METOPROLOL RE [Concomitant]
  4. LEVOTHYROXIN [Concomitant]
     Active Substance: LEVOTHYROXINE
  5. ZEGERED [Concomitant]
  6. REMERON [Concomitant]
     Active Substance: MIRTAZAPINE
  7. ASPIRIN. [Concomitant]
     Active Substance: ASPIRIN
  8. CARAFATE [Concomitant]
     Active Substance: SUCRALFATE
  9. CELECOXIB 200MG [Suspect]
     Active Substance: CELECOXIB
     Indication: ARTHRALGIA
     Dosage: 1 PILL
     Route: 048
     Dates: start: 20150130, end: 20150609
  10. OASIS TEARS [Concomitant]
     Active Substance: GLYCERIN
  11. LIPITOR [Concomitant]
     Active Substance: ATORVASTATIN CALCIUM
  12. FERROUS GLAUCONITE [Concomitant]
  13. NASACORT [Concomitant]
     Active Substance: TRIAMCINOLONE ACETONIDE

REACTIONS (5)
  - Gait disturbance [None]
  - Arthralgia [None]
  - Drug ineffective [None]
  - Product substitution issue [None]
  - Product quality issue [None]

NARRATIVE: CASE EVENT DATE: 20150615
